FAERS Safety Report 24276526 (Version 1)
Quarter: 2024Q3

REPORT INFORMATION
  Report Type: Spontaneous
  Country: FR (occurrence: FR)
  Receive Date: 20240903
  Receipt Date: 20240903
  Transmission Date: 20241016
  Serious: Yes (Hospitalization)
  Sender: RANBAXY
  Company Number: FR-AFSSAPS-SE2024000490

PATIENT
  Age: 84 Year
  Sex: Female
  Weight: 80 kg

DRUGS (1)
  1. ALLOPURINOL [Suspect]
     Active Substance: ALLOPURINOL
     Indication: Hyperuricaemia
     Dosage: 100 MILLIGRAM, DAILY
     Route: 048
     Dates: start: 202401, end: 20240605

REACTIONS (2)
  - Condition aggravated [Recovering/Resolving]
  - Necrotic angiodermatitis [Recovering/Resolving]

NARRATIVE: CASE EVENT DATE: 20240101
